FAERS Safety Report 8286394-8 (Version None)
Quarter: 2012Q2

REPORT INFORMATION
  Report Type: 
  Country: None (occurrence: None)
  Receive Date: 20120411
  Receipt Date: 20120411
  Transmission Date: 20120825
  Serious: Yes (Other)
  Sender: FDA-Public Use
  Company Number: None

PATIENT
  Sex: Female
  Weight: 64.4108 kg

DRUGS (1)
  1. INVEGA [Suspect]
     Dosage: 3 75

REACTIONS (3)
  - ELECTROLYTE IMBALANCE [None]
  - PYREXIA [None]
  - HAIR COLOUR CHANGES [None]
